FAERS Safety Report 25680152 (Version 4)
Quarter: 2025Q4

REPORT INFORMATION
  Report Type: Report from Study
  Country: CA (occurrence: CA)
  Receive Date: 20250814
  Receipt Date: 20251228
  Transmission Date: 20260117
  Serious: Yes (Other)
  Sender: JOHNSON AND JOHNSON
  Company Number: CA-JNJFOC-20250732816

PATIENT
  Age: 15 Year
  Sex: Male
  Weight: 52.9 kg

DRUGS (3)
  1. REMICADE [Suspect]
     Active Substance: INFLIXIMAB
     Indication: Crohn^s disease
     Route: 041
  2. REMICADE [Suspect]
     Active Substance: INFLIXIMAB
     Route: 041
  3. REMICADE [Suspect]
     Active Substance: INFLIXIMAB
     Route: 041

REACTIONS (5)
  - Crohn^s disease [Not Recovered/Not Resolved]
  - Drug level decreased [Recovering/Resolving]
  - Incorrect drug administration rate [Unknown]
  - Gastrointestinal infection [Unknown]
  - Infection [Unknown]

NARRATIVE: CASE EVENT DATE: 20250709
